FAERS Safety Report 17301403 (Version 1)
Quarter: 2020Q1

REPORT INFORMATION
  Report Type: Spontaneous
  Country: JP (occurrence: JP)
  Receive Date: 20200122
  Receipt Date: 20200122
  Transmission Date: 20200409
  Serious: Yes (Hospitalization)
  Sender: FDA-Public Use
  Company Number: JP-EISAI MEDICAL RESEARCH-EC-2020-068602

PATIENT
  Age: 75 Year
  Sex: Female

DRUGS (11)
  1. AMLODIPINE [Concomitant]
     Active Substance: AMLODIPINE BESYLATE
     Indication: BLOOD PRESSURE SYSTOLIC INCREASED
     Route: 048
     Dates: start: 20160119
  2. LENVIMA [Suspect]
     Active Substance: LENVATINIB
     Indication: PAPILLARY THYROID CANCER
     Route: 048
     Dates: start: 20160119, end: 20160211
  3. LENVIMA [Suspect]
     Active Substance: LENVATINIB
     Dosage: DOSE AND FREQUENCY UNKNOWN
     Route: 048
     Dates: end: 2018
  4. LENVIMA [Suspect]
     Active Substance: LENVATINIB
     Dosage: 2 DAYS ON AND 1 DAY OFF
     Route: 048
     Dates: start: 20190809, end: 20190919
  5. LENVIMA [Suspect]
     Active Substance: LENVATINIB
     Dosage: 1 DAY ON AND 2 DAYS OFF
     Route: 048
     Dates: start: 201911
  6. VALSARTAN. [Concomitant]
     Active Substance: VALSARTAN
     Indication: BLOOD PRESSURE SYSTOLIC INCREASED
     Route: 048
     Dates: start: 20160119
  7. LENVIMA [Suspect]
     Active Substance: LENVATINIB
     Dosage: DOSE AND FREQUENCY UNKNOWN
     Route: 048
     Dates: start: 2016, end: 2017
  8. LENVIMA [Suspect]
     Active Substance: LENVATINIB
     Route: 048
     Dates: start: 20191031, end: 2019
  9. LENVIMA [Suspect]
     Active Substance: LENVATINIB
     Route: 048
     Dates: start: 20160317, end: 20160324
  10. LENVIMA [Suspect]
     Active Substance: LENVATINIB
     Dosage: 1 DAY ON AND 2 DAYS OFF
     Route: 048
     Dates: start: 20190920, end: 20191030
  11. LENVIMA [Suspect]
     Active Substance: LENVATINIB
     Route: 048
     Dates: start: 20190604, end: 20190808

REACTIONS (8)
  - Proteinuria [Unknown]
  - Headache [Unknown]
  - Oedema [Unknown]
  - Blood pressure systolic increased [Unknown]
  - Pruritus [Unknown]
  - Decreased appetite [Unknown]
  - Cerebral infarction [Unknown]
  - Epistaxis [Recovered/Resolved]

NARRATIVE: CASE EVENT DATE: 20160119
